FAERS Safety Report 9630758 (Version 2)
Quarter: 2013Q4

REPORT INFORMATION
  Report Type: Report from Study
  Country: AU (occurrence: AU)
  Receive Date: 20131018
  Receipt Date: 20131018
  Transmission Date: 20140711
  Serious: Yes (Hospitalization, Other)
  Sender: FDA-Public Use
  Company Number: PHHO2011AU18023

PATIENT
  Age: 38 Year
  Sex: Female

DRUGS (3)
  1. SOM230 [Suspect]
     Indication: NEUROENDOCRINE TUMOUR
     Dosage: 60 MG, MONTHLY
     Dates: start: 20101216, end: 20110622
  2. CABERGOLINE [Concomitant]
     Indication: PROLACTINOMA
     Dosage: 1 MG, 2 WEEKLY
  3. THYROXINE [Concomitant]
     Indication: HYPOPITUITARISM
     Dosage: 100 UG, QD

REACTIONS (1)
  - Cholecystitis acute [Recovering/Resolving]
